FAERS Safety Report 15889681 (Version 1)
Quarter: 2019Q1

REPORT INFORMATION
  Report Type: Spontaneous
  Country: US (occurrence: US)
  Receive Date: 20190107
  Receipt Date: 20190107
  Transmission Date: 20190417
  Serious: Yes (Other)
  Sender: FDA-Public Use
  Company Number: None

PATIENT
  Age: 56 Year
  Sex: Male
  Weight: 119.1 kg

DRUGS (1)
  1. YESCARTA [Suspect]
     Active Substance: AXICABTAGENE CILOLEUCEL
     Indication: DIFFUSE LARGE B-CELL LYMPHOMA
     Route: 042

REACTIONS (11)
  - Hypotension [None]
  - Haemodialysis [None]
  - Disease progression [None]
  - Pyrexia [None]
  - Atrial fibrillation [None]
  - Neurotoxicity [None]
  - Fungal infection [None]
  - Pancytopenia [None]
  - Sinus tachycardia [None]
  - Aphasia [None]
  - Acute kidney injury [None]

NARRATIVE: CASE EVENT DATE: 20181124
